FAERS Safety Report 5575760-7 (Version None)
Quarter: 2007Q4

REPORT INFORMATION
  Report Type: 
  Country: None (occurrence: None)
  Receive Date: 20071221
  Receipt Date: 20071210
  Transmission Date: 20080405
  Serious: Yes (Other)
  Sender: FDA-Public Use
  Company Number: 230006J07IRL

PATIENT
  Sex: Female

DRUGS (2)
  1. REBIF [Suspect]
     Dosage: 22 MCG, 1 IN 1 WEEKS,SUBCUTANEOUS; 22, 3 IN 1 WEEKS, SUBCUTANEOUS; 44 MCG
     Route: 058
     Dates: start: 19950101
  2. REBIF [Suspect]
     Dosage: 22 MCG, 1 IN 1 WEEKS,SUBCUTANEOUS; 22, 3 IN 1 WEEKS, SUBCUTANEOUS; 44 MCG
     Route: 058
     Dates: start: 19990101

REACTIONS (1)
  - PORPHYRIA [None]
